FAERS Safety Report 11205747 (Version 1)
Quarter: 2015Q2

REPORT INFORMATION
  Report Type: Spontaneous
  Country: US (occurrence: None)
  Receive Date: 20150619
  Receipt Date: 20150619
  Transmission Date: 20150821
  Serious: Yes (Hospitalization)
  Sender: FDA-Public Use
  Company Number: None

PATIENT
  Age: 51 Year
  Sex: Female
  Weight: 64.6 kg

DRUGS (3)
  1. LIDOCAINE HYDROCHLORIDE. [Suspect]
     Active Substance: LIDOCAINE HYDROCHLORIDE
     Dates: end: 20150518
  2. DIPHENHYDRAMINE HYDROCHLORIDE. [Suspect]
     Active Substance: DIPHENHYDRAMINE HYDROCHLORIDE
     Dates: end: 20150518
  3. ALUMINUM HYDROXIDE/MAGNESIUM HYDROXIDE/SIMETHICONE [Suspect]
     Active Substance: ALUMINUM HYDROXIDE\MAGNESIUM HYDROXIDE\SIMETHICONE
     Dates: end: 20150518

REACTIONS (3)
  - Anaemia [None]
  - Blood creatinine increased [None]
  - Pyrexia [None]

NARRATIVE: CASE EVENT DATE: 20150606
